FAERS Safety Report 19721884 (Version 1)
Quarter: 2021Q3

REPORT INFORMATION
  Report Type: Spontaneous
  Country: CA (occurrence: CA)
  Receive Date: 20210819
  Receipt Date: 20210819
  Transmission Date: 20211014
  Serious: Yes (Hospitalization, Other)
  Sender: FDA-Public Use
  Company Number: CA-LUPIN PHARMACEUTICALS INC.-2021-15177

PATIENT
  Age: 53 Year
  Sex: Male

DRUGS (12)
  1. RIFABUTIN. [Concomitant]
     Active Substance: RIFABUTIN
     Indication: DISSEMINATED MYCOBACTERIUM AVIUM COMPLEX INFECTION
     Dosage: UNK
     Route: 065
  2. ETHAMBUTOL [Concomitant]
     Active Substance: ETHAMBUTOL HYDROCHLORIDE
     Indication: DISSEMINATED MYCOBACTERIUM AVIUM COMPLEX INFECTION
     Dosage: UNK
     Route: 065
  3. CEFOXITIN [Concomitant]
     Active Substance: CEFOXITIN SODIUM
     Indication: MYCOBACTERIUM ABSCESSUS INFECTION
     Dosage: UNK
     Route: 065
  4. AMIKACIN. [Concomitant]
     Active Substance: AMIKACIN
     Indication: DISSEMINATED MYCOBACTERIUM AVIUM COMPLEX INFECTION
  5. MOXIFLOXACIN HYDROCHLORIDE. [Suspect]
     Active Substance: MOXIFLOXACIN HYDROCHLORIDE
     Indication: DISSEMINATED MYCOBACTERIUM AVIUM COMPLEX INFECTION
     Dosage: UNK
     Route: 065
  6. LINEZOLID. [Suspect]
     Active Substance: LINEZOLID
     Indication: MYCOBACTERIUM ABSCESSUS INFECTION
     Dosage: UNK
     Route: 065
  7. AMIKACIN. [Concomitant]
     Active Substance: AMIKACIN
     Indication: MYCOBACTERIUM ABSCESSUS INFECTION
     Dosage: UNK
     Route: 065
  8. AZITHROMYCIN ANHYDROUS. [Concomitant]
     Active Substance: AZITHROMYCIN ANHYDROUS
     Indication: DISSEMINATED MYCOBACTERIUM AVIUM COMPLEX INFECTION
     Dosage: UNK
     Route: 065
  9. LINEZOLID. [Suspect]
     Active Substance: LINEZOLID
     Indication: DISSEMINATED MYCOBACTERIUM AVIUM COMPLEX INFECTION
  10. CEFOXITIN [Concomitant]
     Active Substance: CEFOXITIN SODIUM
     Indication: DISSEMINATED MYCOBACTERIUM AVIUM COMPLEX INFECTION
  11. RITUXIMAB. [Concomitant]
     Active Substance: RITUXIMAB
     Indication: DISSEMINATED MYCOBACTERIUM AVIUM COMPLEX INFECTION
  12. RITUXIMAB. [Concomitant]
     Active Substance: RITUXIMAB
     Indication: MYCOBACTERIUM ABSCESSUS INFECTION
     Dosage: 375 MILLIGRAM/SQ. METER, AT MONTHS 0, 1, 6, AND 12
     Route: 065

REACTIONS (2)
  - Tendonitis [Unknown]
  - Thrombocytopenia [Unknown]
